FAERS Safety Report 14105563 (Version 1)
Quarter: 2017Q4

REPORT INFORMATION
  Report Type: Spontaneous
  Country: US (occurrence: US)
  Receive Date: 20171018
  Receipt Date: 20171018
  Transmission Date: 20180321
  Serious: No
  Sender: FDA-Public Use
  Company Number: US-AMGEN-USASP2016134805

PATIENT

DRUGS (1)
  1. PROLIA [Suspect]
     Active Substance: DENOSUMAB
     Indication: PRODUCT USED FOR UNKNOWN INDICATION
     Dosage: UNK
     Route: 065

REACTIONS (9)
  - Blood cholesterol increased [Unknown]
  - Fatigue [Unknown]
  - Blood calcium abnormal [Unknown]
  - Dyspnoea [Unknown]
  - Urinary tract infection [Unknown]
  - Impaired driving ability [Unknown]
  - Back pain [Unknown]
  - Dysstasia [Unknown]
  - Cardiac disorder [Unknown]
